FAERS Safety Report 7440485-X (Version None)
Quarter: 2011Q2

REPORT INFORMATION
  Report Type: 
  Country: None (occurrence: None)
  Receive Date: 20110427
  Receipt Date: 20110414
  Transmission Date: 20111010
  Serious: Yes (Death, Hospitalization)
  Sender: FDA-Public Use
  Company Number: US-CELGENEUS-TAJPN-11-0216

PATIENT
  Sex: Female
  Weight: 48 kg

DRUGS (8)
  1. FENTOS [Concomitant]
     Route: 065
  2. VITAMEDIN [Concomitant]
     Indication: PERIPHERAL SENSORY NEUROPATHY
     Route: 065
     Dates: start: 20101201
  3. GIMERACIL [Concomitant]
     Indication: BREAST CANCER METASTATIC
     Dosage: 80 MILLIGRAM
     Route: 048
     Dates: start: 20110204, end: 20110214
  4. OTERACIL POTASSIUM [Concomitant]
     Indication: BREAST CANCER METASTATIC
     Dosage: 80 MILLIGRAM
     Route: 048
     Dates: start: 20110204, end: 20110214
  5. FEMARA [Concomitant]
     Indication: BREAST CANCER METASTATIC
     Dosage: 2.5 MILLIGRAM
     Route: 048
     Dates: start: 20101027, end: 20110214
  6. TEGAFUR [Concomitant]
     Indication: BREAST CANCER METASTATIC
     Dosage: 80 MILLIGRAM
     Route: 048
     Dates: start: 20110204, end: 20110214
  7. HALCION [Concomitant]
     Route: 048
     Dates: start: 20110214, end: 20110226
  8. ABRAXANE [Suspect]
     Indication: BREAST CANCER METASTATIC
     Dosage: 350 MILLIGRAM
     Route: 051
     Dates: start: 20101202, end: 20110204

REACTIONS (3)
  - MUSCULAR WEAKNESS [None]
  - BREAST CANCER METASTATIC [None]
  - PERIPHERAL SENSORY NEUROPATHY [None]
